FAERS Safety Report 23804217 (Version 3)
Quarter: 2024Q4

REPORT INFORMATION
  Report Type: Spontaneous
  Country: US (occurrence: US)
  Receive Date: 20240501
  Receipt Date: 20241016
  Transmission Date: 20250115
  Serious: Yes (Other)
  Sender: EISAI
  Company Number: US-Eisai-EC-2024-164441

PATIENT
  Sex: Male

DRUGS (2)
  1. LECANEMAB [Suspect]
     Active Substance: LECANEMAB
     Indication: Product used for unknown indication
     Dosage: UNKNOWN DOSE
     Route: 042
     Dates: start: 202312, end: 2024
  2. LECANEMAB [Suspect]
     Active Substance: LECANEMAB
     Dosage: UNKNOWN DOSE
     Route: 042
     Dates: start: 2024

REACTIONS (1)
  - Atrial fibrillation [Recovered/Resolved]

NARRATIVE: CASE EVENT DATE: 20240101
